FAERS Safety Report 21868596 (Version 24)
Quarter: 2025Q1

REPORT INFORMATION
  Report Type: Report from Study
  Country: DE (occurrence: DE)
  Receive Date: 20230117
  Receipt Date: 20250120
  Transmission Date: 20250409
  Serious: Yes (Other)
  Sender: ROCHE
  Company Number: DE-ROCHE-3136763

PATIENT
  Age: 51 Year
  Sex: Female

DRUGS (4)
  1. OCREVUS [Suspect]
     Active Substance: OCRELIZUMAB
     Indication: Primary progressive multiple sclerosis
     Dosage: 600 MG ONCE IN 307 DAYS?600MG, 181 DAYS
     Route: 042
     Dates: start: 20220707
  2. OCREVUS [Suspect]
     Active Substance: OCRELIZUMAB
     Dosage: THEN ONCE EVERY 307 DAYS.
     Route: 042
     Dates: start: 20230111
  3. CANDESARTAN [Concomitant]
     Active Substance: CANDESARTAN
     Indication: Hypertension
  4. ASPIRIN [Concomitant]
     Active Substance: ASPIRIN

REACTIONS (17)
  - Fatigue [Recovered/Resolved]
  - Middle insomnia [Recovered/Resolved]
  - Ataxia [Not Recovered/Not Resolved]
  - Paraesthesia [Not Recovered/Not Resolved]
  - Tuberculosis [Recovered/Resolved]
  - Pain in extremity [Recovering/Resolving]
  - Fatigue [Recovered/Resolved]
  - Anxiety [Not Recovered/Not Resolved]
  - Blood glucose fluctuation [Not Recovered/Not Resolved]
  - Vitamin D deficiency [Recovered/Resolved]
  - Fine motor skill dysfunction [Not Recovered/Not Resolved]
  - Fall [Unknown]
  - Femur fracture [Recovered/Resolved]
  - Bone pain [Recovered/Resolved]
  - Balance disorder [Recovering/Resolving]
  - Therapeutic product effect decreased [Recovered/Resolved]
  - Multiple sclerosis [Not Recovered/Not Resolved]

NARRATIVE: CASE EVENT DATE: 20220707
